FAERS Safety Report 5121155-X (Version None)
Quarter: 2006Q4

REPORT INFORMATION
  Report Type: 
  Country: None (occurrence: None)
  Receive Date: 20061002
  Receipt Date: 20060802
  Transmission Date: 20070319
  Serious: Yes (Hospitalization)
  Sender: FDA-Public Use
  Company Number: 2006BH012343

PATIENT
  Age: 64 Year
  Sex: Male
  Weight: 90 kg

DRUGS (1)
  1. DIANEAL [Suspect]
     Indication: DIALYSIS
     Dosage: 6 L; IP
     Route: 033

REACTIONS (2)
  - FUNGAL PERITONITIS [None]
  - HAEMODIALYSIS [None]
